FAERS Safety Report 8243789-6 (Version None)
Quarter: 2012Q1

REPORT INFORMATION
  Report Type: 
  Country: None (occurrence: None)
  Receive Date: 20120329
  Receipt Date: 20111107
  Transmission Date: 20120608
  Serious: No
  Sender: FDA-Public Use
  Company Number: US-MYLANLABS-2011S1023012

PATIENT
  Age: 47 Year
  Sex: Female
  Weight: 122.47 kg

DRUGS (9)
  1. EMSAM [Suspect]
     Dosage: QD
     Route: 062
     Dates: start: 20110601, end: 20110801
  2. CELEBREX [Concomitant]
     Indication: NEUROPATHY PERIPHERAL
  3. EMSAM [Suspect]
     Indication: DEPRESSION
     Dosage: QD
     Route: 062
     Dates: start: 20110501, end: 20110601
  4. CETIRIZINE [Concomitant]
     Indication: MULTIPLE ALLERGIES
  5. SINGULAIR [Concomitant]
     Indication: ASTHMA
  6. ESTRADIOL [Concomitant]
     Indication: HORMONE REPLACEMENT THERAPY
  7. LUNESTA [Concomitant]
     Indication: INSOMNIA
  8. LEVOXYL [Concomitant]
     Indication: HYPOTHYROIDISM
  9. EMSAM [Suspect]
     Dosage: QD
     Route: 062
     Dates: start: 20110801

REACTIONS (4)
  - APPLICATION SITE VESICLES [None]
  - APPLICATION SITE ERYTHEMA [None]
  - APPLICATION SITE PRURITUS [None]
  - APPLICATION SITE RASH [None]
